FAERS Safety Report 5486304-2 (Version None)
Quarter: 2007Q4

REPORT INFORMATION
  Report Type: 
  Country: None (occurrence: None)
  Receive Date: 20071016
  Receipt Date: 20071011
  Transmission Date: 20080405
  Serious: Yes (Hospitalization)
  Sender: FDA-Public Use
  Company Number: PHNU2007DE03081

PATIENT
  Age: 80 Year
  Sex: Female
  Weight: 56 kg

DRUGS (5)
  1. EXFORGE [Suspect]
     Indication: HYPERTENSION
     Dosage: 1 DF, QD
     Route: 048
     Dates: start: 20070811
  2. CALCIUM [Concomitant]
  3. MAGNESIUM SULFATE [Concomitant]
  4. METOPROLOL SUCCINATE [Concomitant]
     Indication: HYPERTENSION
     Dosage: 1 DF, BID
     Route: 048
     Dates: start: 20070801
  5. ARCOXIA [Concomitant]

REACTIONS (2)
  - PALPITATIONS [None]
  - VENTRICULAR EXTRASYSTOLES [None]
